FAERS Safety Report 5663155-7 (Version None)
Quarter: 2008Q1

REPORT INFORMATION
  Report Type: 
  Country: None (occurrence: None)
  Receive Date: 20080310
  Receipt Date: 20080222
  Transmission Date: 20080703
  Serious: Yes (Other)
  Sender: FDA-Public Use
  Company Number: 8028499

PATIENT
  Age: 36 Year
  Sex: Female

DRUGS (10)
  1. KEPPRA [Suspect]
     Indication: EPILEPSY
     Dosage: 3750 MG /D PO
     Route: 048
     Dates: start: 20020301, end: 20060601
  2. KEPPRA [Suspect]
     Indication: EPILEPSY
     Dosage: 3000 MG /D PO
     Route: 048
     Dates: start: 20060601, end: 20070816
  3. KEPPRA [Suspect]
     Indication: EPILEPSY
     Dosage: 3500 MG /D PO
     Route: 048
     Dates: start: 20070816
  4. LAMICTAL [Concomitant]
  5. LAMICTAL [Concomitant]
  6. LAMICTAL [Concomitant]
  7. PROCARDIA [Concomitant]
  8. FOLIC ACID [Concomitant]
  9. VITAMIN TAB [Concomitant]
  10. BETAMETHASONE [Concomitant]

REACTIONS (4)
  - DRUG EXPOSURE DURING PREGNANCY [None]
  - FOETAL GROWTH RETARDATION [None]
  - PREMATURE BABY [None]
  - UTERINE LEIOMYOMA [None]
